FAERS Safety Report 14264433 (Version 2)
Quarter: 2019Q3

REPORT INFORMATION
  Report Type: Spontaneous
  Country: US (occurrence: US)
  Receive Date: 20171208
  Receipt Date: 20190717
  Transmission Date: 20191004
  Serious: No
  Sender: FDA-Public Use
  Company Number: US-JAZZ-2017-US-011951

PATIENT
  Sex: Female

DRUGS (19)
  1. MORPHINE SULF [Concomitant]
     Active Substance: MORPHINE SULFATE
  2. BUTRANS [Concomitant]
     Active Substance: BUPRENORPHINE
  3. TIZANIDINE HCL [Concomitant]
     Active Substance: TIZANIDINE HYDROCHLORIDE
  4. LYRICA [Concomitant]
     Active Substance: PREGABALIN
  5. FLUOCINOLONE [Concomitant]
     Active Substance: FLUOCINOLONE
  6. XYREM [Suspect]
     Active Substance: SODIUM OXYBATE
     Indication: NARCOLEPSY
     Dosage: 2.25G, BID
     Route: 048
     Dates: start: 201412, end: 201501
  7. XYREM [Suspect]
     Active Substance: SODIUM OXYBATE
     Dosage: DOSE ADJUSTMENTS
     Route: 048
     Dates: start: 201501, end: 201501
  8. TRAMADOL. [Concomitant]
     Active Substance: TRAMADOL
  9. CLONAZEPAM. [Concomitant]
     Active Substance: CLONAZEPAM
  10. MIRALAX [Concomitant]
     Active Substance: POLYETHYLENE GLYCOL 3350
  11. HYDROCODONE BITARTRATE W/PPA [Concomitant]
  12. NUVIGIL [Concomitant]
     Active Substance: ARMODAFINIL
  13. VITAMIN D2 [Concomitant]
     Active Substance: ERGOCALCIFEROL
  14. METHOCARBAMOL. [Concomitant]
     Active Substance: METHOCARBAMOL
  15. PIROXICAM. [Concomitant]
     Active Substance: PIROXICAM
  16. FLONASE ALLERGY RELIEF [Concomitant]
     Active Substance: FLUTICASONE PROPIONATE
  17. XYREM [Suspect]
     Active Substance: SODIUM OXYBATE
     Dosage: 4.5G, BID
     Route: 048
     Dates: start: 201501
  18. TRAMADOL HCL [Concomitant]
     Active Substance: TRAMADOL HYDROCHLORIDE
  19. GABAPENTIN. [Concomitant]
     Active Substance: GABAPENTIN

REACTIONS (2)
  - Diplopia [Recovered/Resolved]
  - Migraine [Unknown]
